FAERS Safety Report 5677017-2 (Version None)
Quarter: 2008Q1

REPORT INFORMATION
  Report Type: 
  Country: None (occurrence: None)
  Receive Date: 20080324
  Receipt Date: 20080312
  Transmission Date: 20080703
  Serious: Yes (Hospitalization, Other)
  Sender: FDA-Public Use
  Company Number: PHBS2008AU03394

PATIENT
  Age: 50 Year
  Sex: Female

DRUGS (4)
  1. CYCLOSPORINE [Suspect]
     Indication: RENAL TRANSPLANT
     Dosage: 50 MG, BID
     Dates: start: 19980101
  2. PREDNISONE TAB [Suspect]
     Indication: RENAL TRANSPLANT
     Dosage: 7 MG/D
     Dates: start: 19830101
  3. PREDNISONE TAB [Suspect]
     Dosage: 4 MG/D
  4. NEUPOGEN [Concomitant]

REACTIONS (14)
  - ASPIRATION BONE MARROW ABNORMAL [None]
  - BLADDER TRANSITIONAL CELL CARCINOMA [None]
  - BLOOD LACTATE DEHYDROGENASE INCREASED [None]
  - CHRONIC ALLOGRAFT NEPHROPATHY [None]
  - HAEMODIALYSIS [None]
  - HEPATIC ENZYME INCREASED [None]
  - HEPATOSPLENIC T-CELL LYMPHOMA [None]
  - ILEUS [None]
  - NEUROPATHY PERIPHERAL [None]
  - NEUTROPENIC SEPSIS [None]
  - PANCYTOPENIA [None]
  - PYREXIA [None]
  - SPLENOMEGALY [None]
  - TRANSURETHRAL BLADDER RESECTION [None]
